FAERS Safety Report 4899210-9 (Version None)
Quarter: 2006Q1

REPORT INFORMATION
  Report Type: 
  Country: None (occurrence: None)
  Receive Date: 20060202
  Receipt Date: 20060126
  Transmission Date: 20060701
  Serious: Yes (Other)
  Sender: FDA-Public Use
  Company Number: SE-ABBOTT-06P-150-0323368-00

PATIENT
  Age: 35 Year
  Sex: Female

DRUGS (4)
  1. REDUCTIL [Suspect]
     Indication: OBESITY
     Dates: end: 20040101
  2. REDUCTIL [Suspect]
     Route: 048
     Dates: start: 20050520
  3. MARVELON [Suspect]
     Indication: DRUG USE FOR UNKNOWN INDICATION
     Route: 048
  4. PANTOPRAZOLE SODIUM [Concomitant]
     Indication: DRUG USE FOR UNKNOWN INDICATION
     Route: 048

REACTIONS (10)
  - CEREBRAL INFARCTION [None]
  - COLD SWEAT [None]
  - DIZZINESS [None]
  - FEELING COLD [None]
  - HEADACHE [None]
  - HYPOAESTHESIA [None]
  - NAUSEA [None]
  - PAIN [None]
  - PANIC REACTION [None]
  - VOMITING [None]
